FAERS Safety Report 8255147-9 (Version None)
Quarter: 2012Q1

REPORT INFORMATION
  Report Type: 
  Country: None (occurrence: None)
  Receive Date: 20120330
  Receipt Date: 20120318
  Transmission Date: 20120608
  Serious: Yes (Other)
  Sender: FDA-Public Use
  Company Number: 2012SA019197

PATIENT
  Sex: Female

DRUGS (2)
  1. MENTHOL [Suspect]
     Indication: MUSCULOSKELETAL STIFFNESS
     Dosage: TOPICAL
     Route: 061
     Dates: start: 20120301
  2. MENTHOL [Suspect]
     Indication: NECK PAIN
     Dosage: TOPICAL
     Route: 061
     Dates: start: 20120301

REACTIONS (4)
  - FEELING ABNORMAL [None]
  - BURNS THIRD DEGREE [None]
  - CHEMICAL INJURY [None]
  - APPLICATION SITE BURN [None]
